FAERS Safety Report 4851211-2 (Version None)
Quarter: 2005Q4

REPORT INFORMATION
  Report Type: 
  Country: None (occurrence: None)
  Receive Date: 20051208
  Receipt Date: 20051128
  Transmission Date: 20060501
  Serious: Yes (Hospitalization)
  Sender: FDA-Public Use
  Company Number: 2005160979

PATIENT
  Age: 10 Year
  Sex: Female

DRUGS (3)
  1. BENADRYL [Suspect]
     Indication: ECZEMA
     Dosage: 25 MG Q4H, ORAL
     Route: 048
  2. DIPHENHYDRAMINE HCL [Suspect]
     Indication: ECZEMA
     Dosage: 2 TABLS DAILY, ORAL
     Route: 048
  3. DIAZEPAM [Concomitant]

REACTIONS (5)
  - CONDITION AGGRAVATED [None]
  - DRUG INEFFECTIVE [None]
  - ECZEMA [None]
  - MOVEMENT DISORDER [None]
  - STAPHYLOCOCCAL INFECTION [None]
